FAERS Safety Report 7171518-6 (Version None)
Quarter: 2010Q4

REPORT INFORMATION
  Report Type: 
  Country: None (occurrence: None)
  Receive Date: 20101217
  Receipt Date: 20101207
  Transmission Date: 20110411
  Serious: Yes (Disabling)
  Sender: FDA-Public Use
  Company Number: US-MYLANLABS-2010S1022458

PATIENT
  Age: 64 Year
  Sex: Female
  Weight: 36.29 kg

DRUGS (2)
  1. ZOLOFT [Suspect]
     Indication: DEPRESSION
     Dates: end: 20101101
  2. HALOPERIDOL TABLETS, USP [Suspect]
     Indication: DEPRESSION
     Route: 048
     Dates: start: 20101001, end: 20101101

REACTIONS (6)
  - DEPRESSION [None]
  - DRUG INEFFECTIVE FOR UNAPPROVED INDICATION [None]
  - DYSPHAGIA [None]
  - HYPOKINESIA [None]
  - TREMOR [None]
  - WEIGHT DECREASED [None]
